FAERS Safety Report 23793448 (Version 2)
Quarter: 2024Q2

REPORT INFORMATION
  Report Type: Spontaneous
  Country: US (occurrence: US)
  Receive Date: 20240429
  Receipt Date: 20240506
  Transmission Date: 20240716
  Serious: No
  Sender: FDA-Public Use
  Company Number: US-SA-SAC20240424000887

PATIENT
  Age: 20 Year
  Sex: Female

DRUGS (6)
  1. TZIELD [Suspect]
     Active Substance: TEPLIZUMAB-MZWV
     Indication: Diabetes prophylaxis
     Dosage: 115.7 UG, 1X
     Route: 042
     Dates: start: 20240419, end: 20240419
  2. TZIELD [Suspect]
     Active Substance: TEPLIZUMAB-MZWV
     Dosage: 222.5 UG, 1X
     Route: 042
     Dates: start: 20240420, end: 20240420
  3. TZIELD [Suspect]
     Active Substance: TEPLIZUMAB-MZWV
     Dosage: 445 UG, 1X
     Route: 042
     Dates: start: 20240421, end: 20240421
  4. TZIELD [Suspect]
     Active Substance: TEPLIZUMAB-MZWV
     Dosage: 890 UG, 1X
     Route: 042
     Dates: start: 20240422, end: 20240422
  5. TZIELD [Suspect]
     Active Substance: TEPLIZUMAB-MZWV
     Dosage: 1833.4 UG, 1X
     Route: 042
     Dates: start: 20240423, end: 20240423
  6. IBUPROFEN [Concomitant]
     Active Substance: IBUPROFEN
     Indication: Premedication
     Dosage: UNK
     Dates: start: 20240419

REACTIONS (9)
  - Peripheral swelling [Unknown]
  - Pain [Unknown]
  - Feeding disorder [Unknown]
  - Sleep disorder due to a general medical condition [Unknown]
  - Arthralgia [Unknown]
  - Nausea [Unknown]
  - Headache [Unknown]
  - Rash [Unknown]
  - Rash macular [Unknown]

NARRATIVE: CASE EVENT DATE: 20240420
